FAERS Safety Report 9015541 (Version 1)
Quarter: 2013Q1

REPORT INFORMATION
  Report Type: Spontaneous
  Country: FR (occurrence: None)
  Receive Date: 20130103
  Receipt Date: 20130103
  Transmission Date: 20140127
  Serious: Yes (Other)
  Sender: FDA-Public Use
  Company Number: 2012P1068327

PATIENT
  Age: 66 Year
  Sex: Male

DRUGS (4)
  1. SUFENTANIL CITRATE [Suspect]
     Indication: GENERAL ANAESTHESIA
     Route: 042
  2. SUFENTANIL CITRATE [Suspect]
     Indication: STENT PLACEMENT
     Route: 042
  3. PROPOFOL [Suspect]
     Indication: GENERAL ANAESTHESIA
     Route: 042
  4. PROPOFOL [Suspect]
     Indication: STENT PLACEMENT
     Route: 042

REACTIONS (2)
  - VIIth nerve paralysis [None]
  - Facial spasm [None]
